FAERS Safety Report 16937171 (Version 1)
Quarter: 2019Q4

REPORT INFORMATION
  Report Type: Spontaneous
  Country: US (occurrence: US)
  Receive Date: 20191018
  Receipt Date: 20191018
  Transmission Date: 20200122
  Serious: Yes (Other)
  Sender: FDA-Public Use
  Company Number: US-GLAXOSMITHKLINE-US2019AMR185688

PATIENT
  Sex: Female
  Weight: 76.66 kg

DRUGS (3)
  1. LYRICA [Suspect]
     Active Substance: PREGABALIN
     Indication: PRODUCT USED FOR UNKNOWN INDICATION
     Dosage: 50 MG, BID
     Route: 065
  2. ANORO ELLIPTA [Suspect]
     Active Substance: UMECLIDINIUM BROMIDE\VILANTEROL TRIFENATATE
     Indication: PRODUCT USED FOR UNKNOWN INDICATION
     Dosage: UNK
     Route: 065
  3. FLOMAX [Suspect]
     Active Substance: TAMSULOSIN HYDROCHLORIDE
     Indication: PRODUCT USED FOR UNKNOWN INDICATION
     Dosage: UNK
     Route: 065

REACTIONS (13)
  - Cardiac failure congestive [Unknown]
  - Malaise [Unknown]
  - Blood sodium increased [Unknown]
  - Visual impairment [Unknown]
  - Diplopia [Unknown]
  - Confusional state [Unknown]
  - Reading disorder [Unknown]
  - Lymphoedema [Unknown]
  - Weight fluctuation [Unknown]
  - Prescribed overdose [Unknown]
  - Dry eye [Unknown]
  - Condition aggravated [Unknown]
  - Ocular discomfort [Unknown]
